FAERS Safety Report 25271621 (Version 1)
Quarter: 2025Q2

REPORT INFORMATION
  Report Type: Spontaneous
  Country: BE (occurrence: BE)
  Receive Date: 20250506
  Receipt Date: 20250506
  Transmission Date: 20250717
  Serious: Yes (Hospitalization, Other)
  Sender: RANBAXY
  Company Number: BE-SUN PHARMACEUTICAL INDUSTRIES LTD-2025R1-506161

PATIENT
  Age: 25 Year
  Sex: Male

DRUGS (12)
  1. CLONIDINE [Suspect]
     Active Substance: CLONIDINE
     Indication: Rhabdomyolysis
     Route: 065
  2. CLONIDINE [Suspect]
     Active Substance: CLONIDINE
     Indication: Crush syndrome
  3. MIDAZOLAM [Suspect]
     Active Substance: MIDAZOLAM
     Indication: Rhabdomyolysis
     Route: 065
  4. MIDAZOLAM [Suspect]
     Active Substance: MIDAZOLAM
     Indication: Crush syndrome
  5. MORPHINE [Suspect]
     Active Substance: MORPHINE
     Indication: Rhabdomyolysis
     Route: 065
  6. MORPHINE [Suspect]
     Active Substance: MORPHINE
     Indication: Crush syndrome
  7. PYRIDOXINE [Suspect]
     Active Substance: PYRIDOXINE
     Indication: Rhabdomyolysis
     Route: 065
  8. PYRIDOXINE [Suspect]
     Active Substance: PYRIDOXINE
     Indication: Crush syndrome
  9. SODIUM BICARBONATE [Suspect]
     Active Substance: SODIUM BICARBONATE
     Indication: Rhabdomyolysis
     Route: 065
  10. SODIUM BICARBONATE [Suspect]
     Active Substance: SODIUM BICARBONATE
     Indication: Crush syndrome
  11. VITAMIN B1 [Suspect]
     Active Substance: THIAMINE HYDROCHLORIDE
     Indication: Rhabdomyolysis
     Route: 065
  12. VITAMIN B1 [Suspect]
     Active Substance: THIAMINE HYDROCHLORIDE
     Indication: Crush syndrome

REACTIONS (1)
  - Back pain [Unknown]
